FAERS Safety Report 4276725-8 (Version None)
Quarter: 2004Q1

REPORT INFORMATION
  Report Type: 
  Country: None (occurrence: None)
  Receive Date: 20040120
  Receipt Date: 20040120
  Transmission Date: 20041129
  Serious: Yes (Life-Threatening, Hospitalization)
  Sender: FDA-Public Use
  Company Number: None

PATIENT
  Age: 68 Year
  Sex: Male
  Weight: 54 kg

DRUGS (3)
  1. HUMULIN U [Suspect]
  2. INSULIN NPH-U [Concomitant]
  3. INSULIN REGULAR U [Concomitant]

REACTIONS (1)
  - HYPOGLYCAEMIA [None]
